FAERS Safety Report 13700888 (Version 2)
Quarter: 2017Q3

REPORT INFORMATION
  Report Type: Spontaneous
  Country: JP (occurrence: JP)
  Receive Date: 20170629
  Receipt Date: 20170711
  Transmission Date: 20171127
  Serious: Yes (Death)
  Sender: FDA-Public Use
  Company Number: JP-ASTRAZENECA-2017SE65786

PATIENT
  Age: 80 Year
  Sex: Female
  Weight: 54 kg

DRUGS (9)
  1. CRESTOR [Suspect]
     Active Substance: ROSUVASTATIN CALCIUM
     Dosage: 2.5MG UNKNOWN
     Route: 048
  2. BIPERIDEN HYDROCHLORIDE [Interacting]
     Active Substance: BIPERIDEN HYDROCHLORIDE
     Dosage: UNKNOWN
     Route: 065
  3. HALOPERIDOL. [Interacting]
     Active Substance: HALOPERIDOL
     Dosage: UNKNOWN
     Route: 065
  4. GLIMEPIRIDE. [Interacting]
     Active Substance: GLIMEPIRIDE
     Dosage: UNKNOWN
     Route: 065
  5. ZOPICLONE [Interacting]
     Active Substance: ZOPICLONE
     Dosage: UNKNOWN
     Route: 065
  6. METFORMIN HYDROCHLORIDE. [Interacting]
     Active Substance: METFORMIN HYDROCHLORIDE
     Dosage: UNKNOWN
     Route: 065
  7. ETIZOLAM [Interacting]
     Active Substance: ETIZOLAM
     Dosage: UNKNOWN
     Route: 065
  8. FLUNITRAZEPAM [Interacting]
     Active Substance: FLUNITRAZEPAM
     Dosage: UNKNOWN
     Route: 065
  9. CONTOMIN [Interacting]
     Active Substance: CHLORPROMAZINE
     Dosage: UNKNOWN
     Route: 065

REACTIONS (5)
  - Intentional overdose [Fatal]
  - Multi-organ disorder [Fatal]
  - Completed suicide [Fatal]
  - Toxicity to various agents [Fatal]
  - Drug interaction [Fatal]
